FAERS Safety Report 16019220 (Version 3)
Quarter: 2019Q3

REPORT INFORMATION
  Report Type: Spontaneous
  Country: US (occurrence: US)
  Receive Date: 20190228
  Receipt Date: 20190726
  Transmission Date: 20191004
  Serious: Yes (Death, Other)
  Sender: FDA-Public Use
  Company Number: US-ASTRAZENECA-2018SF47981

PATIENT
  Sex: Female

DRUGS (19)
  1. NEXIUM [Suspect]
     Active Substance: ESOMEPRAZOLE MAGNESIUM
     Route: 048
     Dates: start: 20080123
  2. NEXIUM [Suspect]
     Active Substance: ESOMEPRAZOLE MAGNESIUM
     Dosage: 40.0MG UNKNOWN
     Route: 048
     Dates: start: 20110414
  3. AMLODIPINE BESYLATE. [Concomitant]
     Active Substance: AMLODIPINE BESYLATE
  4. METHOCARBAMOL. [Concomitant]
     Active Substance: METHOCARBAMOL
  5. PEPCID [Concomitant]
     Active Substance: FAMOTIDINE
  6. TRAMADOL. [Concomitant]
     Active Substance: TRAMADOL
  7. JANUVIA [Concomitant]
     Active Substance: SITAGLIPTIN PHOSPHATE
  8. PREVACID [Suspect]
     Active Substance: LANSOPRAZOLE
     Route: 065
  9. DEXILANT [Suspect]
     Active Substance: DEXLANSOPRAZOLE
     Route: 065
  10. PRILOSEC [Suspect]
     Active Substance: OMEPRAZOLE MAGNESIUM
     Route: 048
     Dates: start: 20080123
  11. LOSARTAN. [Concomitant]
     Active Substance: LOSARTAN
  12. GLIMEPIRIDE. [Concomitant]
     Active Substance: GLIMEPIRIDE
  13. MELOXICAM. [Concomitant]
     Active Substance: MELOXICAM
  14. NABUMETONE. [Concomitant]
     Active Substance: NABUMETONE
  15. WARFARIN [Concomitant]
     Active Substance: WARFARIN
  16. ZANTAC [Concomitant]
     Active Substance: RANITIDINE HYDROCHLORIDE
  17. SIMETHICONE (DIMETHICONE) [Concomitant]
     Active Substance: DIMETHICONE
  18. FUROSEMIDE. [Concomitant]
     Active Substance: FUROSEMIDE
  19. SINGULAIR [Concomitant]
     Active Substance: MONTELUKAST SODIUM

REACTIONS (6)
  - Tubulointerstitial nephritis [Unknown]
  - Renal injury [Unknown]
  - Rebound acid hypersecretion [Unknown]
  - Chronic kidney disease [Unknown]
  - Death [Fatal]
  - Renal failure [Unknown]
